FAERS Safety Report 5196670-3 (Version None)
Quarter: 2007Q1

REPORT INFORMATION
  Report Type: 
  Country: None (occurrence: None)
  Receive Date: 20070103
  Receipt Date: 20061221
  Transmission Date: 20070707
  Serious: Yes (Other)
  Sender: FDA-Public Use
  Company Number: PHBS2006JP13586

PATIENT
  Age: 74 Year
  Sex: Female

DRUGS (8)
  1. SIMVASTATIN [Concomitant]
     Route: 048
  2. BAYCARON [Concomitant]
     Route: 048
  3. NORVASC [Concomitant]
  4. D ALFA [Concomitant]
     Route: 048
  5. OLMETEC [Concomitant]
     Route: 048
  6. MECOBALAMIN [Concomitant]
     Route: 048
  7. BIOFERMIN [Concomitant]
     Route: 048
  8. LAMISIL [Suspect]
     Indication: NAIL TINEA
     Dosage: 125 MG/DAY
     Route: 048
     Dates: start: 20060616, end: 20060807

REACTIONS (3)
  - BLOOD CHOLESTEROL INCREASED [None]
  - BLOOD TRIGLYCERIDES INCREASED [None]
  - HYPERTRIGLYCERIDAEMIA [None]
